FAERS Safety Report 20328483 (Version 14)
Quarter: 2024Q4

REPORT INFORMATION
  Report Type: Spontaneous
  Country: US (occurrence: US)
  Receive Date: 20220112
  Receipt Date: 20241219
  Transmission Date: 20250115
  Serious: Yes (Other)
  Sender: PFIZER
  Company Number: US-PFIZER INC-202101797734

PATIENT
  Age: 78 Year
  Sex: Female
  Weight: 56.236 kg

DRUGS (2)
  1. BOSULIF [Suspect]
     Active Substance: BOSUTINIB MONOHYDRATE
     Indication: Philadelphia positive chronic myeloid leukaemia
     Dosage: 100 MG, DAILY (100MGS A DAY)
  2. BOSULIF [Suspect]
     Active Substance: BOSUTINIB MONOHYDRATE
     Dosage: TAKE 2 TABLETS (200 MG) BY MOUTH DAILY. TAKE WITH FOOD. CALL CLINIC BEFORE STARTING MEDICATION.
     Route: 048

REACTIONS (6)
  - Shoulder arthroplasty [Unknown]
  - Cough [Unknown]
  - Stress [Unknown]
  - Initial insomnia [Unknown]
  - Visual impairment [Unknown]
  - Feeling abnormal [Not Recovered/Not Resolved]

NARRATIVE: CASE EVENT DATE: 20230207
